FAERS Safety Report 12947007 (Version 1)
Quarter: 2016Q4

REPORT INFORMATION
  Report Type: Spontaneous
  Country: US (occurrence: US)
  Receive Date: 20161116
  Receipt Date: 20161116
  Transmission Date: 20170207
  Serious: No
  Sender: FDA-Public Use
  Company Number: US-PFIZER INC-2016533075

PATIENT
  Age: 72 Year
  Sex: Female
  Weight: 81.63 kg

DRUGS (1)
  1. GABAPENTIN. [Suspect]
     Active Substance: GABAPENTIN
     Indication: PAIN
     Dosage: UNK
     Dates: start: 201609

REACTIONS (3)
  - Pain [Unknown]
  - Condition aggravated [Unknown]
  - Drug ineffective for unapproved indication [Unknown]
